FAERS Safety Report 5788709-9 (Version None)
Quarter: 2008Q2

REPORT INFORMATION
  Report Type: 
  Country: None (occurrence: None)
  Receive Date: 20080618
  Receipt Date: 20071108
  Transmission Date: 20081010
  Serious: Yes (Other)
  Sender: FDA-Public Use
  Company Number: 200717900US

PATIENT
  Age: 62 Year
  Sex: Male

DRUGS (12)
  1. LANTUS [Suspect]
     Indication: TYPE 2 DIABETES MELLITUS
     Dosage: 90 U HS INJ; A FEW YEARS
  2. NOVOLOG [Concomitant]
  3. OMEPRAZOLE (PRILOSEC 00661201/) [Concomitant]
  4. IBUPROFEN [Concomitant]
  5. VITAMINS NOS (MVI) [Concomitant]
  6. HYDROCHLOROTHIAZIDE [Concomitant]
  7. TRANXENE [Concomitant]
  8. OXYCODONE HCL [Concomitant]
  9. ALBUTEROL [Concomitant]
  10. LISINOPRIL [Concomitant]
  11. NIFEDIPINE [Concomitant]
  12. LANOXIN [Concomitant]

REACTIONS (4)
  - BLOOD GLUCOSE INCREASED [None]
  - HYPOGLYCAEMIA [None]
  - NERVOUSNESS [None]
  - PALPITATIONS [None]
